FAERS Safety Report 4971640-6 (Version None)
Quarter: 2006Q2

REPORT INFORMATION
  Report Type: 
  Country: None (occurrence: None)
  Receive Date: 20060406
  Receipt Date: 20060328
  Transmission Date: 20061013
  Serious: Yes (Hospitalization, Disabling, Other)
  Sender: FDA-Public Use
  Company Number: 2006034487

PATIENT
  Age: 101 Year
  Sex: Female
  Weight: 37 kg

DRUGS (5)
  1. LIPITOR [Suspect]
     Indication: HYPERCHOLESTEROLAEMIA
     Dosage: 10 MG (10 MG, 1 IN 1 D), ORAL
     Route: 048
     Dates: end: 20060307
  2. TRANDOLAPRIL [Concomitant]
  3. FOSAMAX [Concomitant]
  4. XALATAN [Concomitant]
  5. TIMOLOL MALEATE [Concomitant]

REACTIONS (9)
  - ACTIVITIES OF DAILY LIVING IMPAIRED [None]
  - CONFUSIONAL STATE [None]
  - FAECAL INCONTINENCE [None]
  - FALL [None]
  - INCOHERENT [None]
  - OEDEMA PERIPHERAL [None]
  - PITTING OEDEMA [None]
  - RHABDOMYOLYSIS [None]
  - TACHYCARDIA [None]
